FAERS Safety Report 10621717 (Version 1)
Quarter: 2014Q4

REPORT INFORMATION
  Report Type: Spontaneous
  Country: ES (occurrence: ES)
  Receive Date: 20141203
  Receipt Date: 20141203
  Transmission Date: 20150529
  Serious: Yes (Death, Other)
  Sender: FDA-Public Use
  Company Number: PHHY2014ES155779

PATIENT
  Age: 63 Year
  Sex: Female

DRUGS (6)
  1. INTERFERON NOS [Concomitant]
     Active Substance: INTERFERON
     Indication: HEPATITIS CHOLESTATIC
     Route: 065
  2. TACROLIMUS. [Suspect]
     Active Substance: TACROLIMUS
     Indication: IMMUNOSUPPRESSION
     Route: 065
  3. EVEROLIMUS [Suspect]
     Active Substance: EVEROLIMUS
     Indication: IMMUNOSUPPRESSION
     Dosage: 0.5 MG, EVERY12 HOURS
     Route: 065
  4. MYCOPHENOLATE MOFETIL. [Suspect]
     Active Substance: MYCOPHENOLATE MOFETIL
     Indication: IMMUNOSUPPRESSION
     Route: 065
  5. TACROLIMUS. [Suspect]
     Active Substance: TACROLIMUS
  6. RIBAVIRIN. [Concomitant]
     Active Substance: RIBAVIRIN
     Indication: HEPATITIS CHOLESTATIC
     Route: 065

REACTIONS (5)
  - Liver transplant rejection [Unknown]
  - Neurotoxicity [Recovered/Resolved]
  - Mucosal inflammation [Unknown]
  - Death [Fatal]
  - Locked-in syndrome [Recovered/Resolved]
